FAERS Safety Report 6020286-X (Version None)
Quarter: 2008Q4

REPORT INFORMATION
  Report Type: 
  Country: None (occurrence: None)
  Receive Date: 20081223
  Receipt Date: 20081223
  Transmission Date: 20090506
  Serious: Yes (Death)
  Sender: FDA-Public Use
  Company Number: None

PATIENT
  Age: 29 Year
  Sex: Female
  Weight: 54 kg

DRUGS (2)
  1. COVIRO LS 30 (LAMIVUDINE/STAVUDINE) [Suspect]
     Indication: HIV INFECTION
     Dosage: 300MG/60MG BID ORAL
     Route: 048
     Dates: start: 20071030, end: 20081117
  2. EFAVIRENZ [Suspect]
     Indication: HIV INFECTION
     Dosage: 600MG BID ORAL
     Route: 048
     Dates: start: 20071030, end: 20081117

REACTIONS (1)
  - LACTIC ACIDOSIS [None]
